FAERS Safety Report 9758440 (Version 13)
Quarter: 2015Q4

REPORT INFORMATION
  Report Type: Report from Study
  Country: US (occurrence: US)
  Receive Date: 20131216
  Receipt Date: 20151124
  Transmission Date: 20160305
  Serious: Yes (Disabling, Other)
  Sender: FDA-Public Use
  Company Number: US-SA-2013SA127677

PATIENT
  Age: 52 Year
  Sex: Female

DRUGS (2)
  1. AUBAGIO [Suspect]
     Active Substance: TERIFLUNOMIDE
     Indication: MULTIPLE SCLEROSIS
     Route: 048
     Dates: start: 20140324, end: 20150901
  2. AUBAGIO [Suspect]
     Active Substance: TERIFLUNOMIDE
     Indication: MULTIPLE SCLEROSIS
     Route: 048
     Dates: start: 20130306, end: 20140310

REACTIONS (36)
  - Memory impairment [Unknown]
  - Fall [Unknown]
  - Back pain [Unknown]
  - Thyroid disorder [Unknown]
  - Hyperhidrosis [Unknown]
  - Condition aggravated [Unknown]
  - Road traffic accident [Unknown]
  - Muscular weakness [Recovered/Resolved]
  - Amnesia [Recovered/Resolved]
  - Anaemia [Recovering/Resolving]
  - Fatigue [Recovering/Resolving]
  - Fatigue [Unknown]
  - Fall [Unknown]
  - Intervertebral disc degeneration [Unknown]
  - Skin ulcer [Recovering/Resolving]
  - Gait disturbance [Recovering/Resolving]
  - Malaise [Unknown]
  - Pain [Unknown]
  - Post-traumatic pain [Unknown]
  - Erythema [Unknown]
  - Fractured coccyx [Recovering/Resolving]
  - Mass [Unknown]
  - Memory impairment [Unknown]
  - Wound infection [Unknown]
  - Wound [Recovered/Resolved]
  - Walking aid user [Unknown]
  - Infected skin ulcer [Unknown]
  - Feeling abnormal [Not Recovered/Not Resolved]
  - Purulence [Unknown]
  - Intestinal polyp [Unknown]
  - Multiple sclerosis relapse [Recovered/Resolved]
  - Blood iron decreased [Recovering/Resolving]
  - Impaired healing [Recovering/Resolving]
  - Scar [Unknown]
  - Immune system disorder [Unknown]
  - Alopecia [Unknown]

NARRATIVE: CASE EVENT DATE: 20131129
